FAERS Safety Report 6555891-5 (Version None)
Quarter: 2010Q1

REPORT INFORMATION
  Report Type: 
  Country: None (occurrence: None)
  Receive Date: 20100128
  Receipt Date: 20100113
  Transmission Date: 20100710
  Serious: Yes (Hospitalization, Other)
  Sender: FDA-Public Use
  Company Number: US-BAYER-200942601NA

PATIENT
  Age: 36 Year
  Sex: Female

DRUGS (9)
  1. BETASERON [Suspect]
     Indication: RELAPSING-REMITTING MULTIPLE SCLEROSIS
     Dosage: TOTAL DAILY DOSE: 4 MIU
     Route: 058
     Dates: start: 20091207
  2. BETASERON [Suspect]
     Route: 058
     Dates: start: 20091023, end: 20091201
  3. BETASERON [Suspect]
     Route: 058
     Dates: start: 20060101, end: 20070201
  4. ADVIL [Concomitant]
     Indication: PAIN
     Route: 065
     Dates: start: 20091101, end: 20091101
  5. EXTRA STRENGTH TYLENOL [Concomitant]
     Indication: PAIN
     Route: 065
     Dates: start: 20091101, end: 20091101
  6. CONTRACEPTIVE [Concomitant]
     Indication: CONTRACEPTION
     Route: 048
     Dates: start: 20080301
  7. OCELLA [Concomitant]
     Indication: CONTRACEPTION
     Route: 065
     Dates: start: 20091001
  8. ASACOL [Concomitant]
     Indication: COLITIS ULCERATIVE
     Route: 065
     Dates: start: 20080101
  9. VITAMINS [Concomitant]
     Route: 065

REACTIONS (8)
  - ABNORMAL LABOUR [None]
  - FATIGUE [None]
  - GASTROENTERITIS VIRAL [None]
  - NASOPHARYNGITIS [None]
  - PAIN [None]
  - PREGNANCY [None]
  - PYREXIA [None]
  - VIRAL INFECTION [None]
